FAERS Safety Report 20790883 (Version 3)
Quarter: 2022Q2

REPORT INFORMATION
  Report Type: Other
  Country: US (occurrence: US)
  Receive Date: 20220505
  Receipt Date: 20220608
  Transmission Date: 20220721
  Serious: No
  Sender: FDA-Public Use
  Company Number: US-DECIPHERA PHARMACEUTICALS LLC-2022US000359

PATIENT
  Sex: Female

DRUGS (20)
  1. QINLOCK [Suspect]
     Active Substance: RIPRETINIB
     Indication: Gastrointestinal stromal tumour
     Dosage: 100 MILLIGRAM, QD
     Route: 048
     Dates: start: 20210715
  2. QINLOCK [Suspect]
     Active Substance: RIPRETINIB
     Dosage: 50 MILLIGRAM, QD
     Route: 048
     Dates: end: 202205
  3. PEPTO-BISMOL [Suspect]
     Active Substance: BISMUTH SUBSALICYLATE
     Indication: Product used for unknown indication
     Dosage: UNK
  4. ALLOPURINOL [Concomitant]
     Active Substance: ALLOPURINOL
     Indication: Product used for unknown indication
     Dosage: UNK
     Dates: start: 20180814
  5. GABAPENTIN [Concomitant]
     Active Substance: GABAPENTIN
     Indication: Product used for unknown indication
     Dosage: 100 MILLIGRAM, TID
     Route: 048
     Dates: start: 20211118
  6. GLEEVEC [Concomitant]
     Active Substance: IMATINIB MESYLATE
     Indication: Product used for unknown indication
     Dosage: UNK
     Dates: start: 20150508
  7. MEDROL [Concomitant]
     Active Substance: METHYLPREDNISOLONE
     Indication: Product used for unknown indication
     Dosage: UNK
     Dates: start: 20210318
  8. OXYCODONE HYDROCHLORIDE [Concomitant]
     Active Substance: OXYCODONE HYDROCHLORIDE
     Indication: Product used for unknown indication
     Dosage: UNK
     Dates: start: 20220510
  9. TRAMADOL HCL [Concomitant]
     Active Substance: TRAMADOL HYDROCHLORIDE
     Indication: Product used for unknown indication
     Dosage: UNK
     Dates: start: 20210715
  10. UREA [Concomitant]
     Active Substance: UREA
     Indication: Product used for unknown indication
     Dosage: UNK
     Dates: start: 20211118
  11. ZITHROMAX [Concomitant]
     Active Substance: AZITHROMYCIN DIHYDRATE
     Indication: Product used for unknown indication
     Dosage: UNK
     Dates: start: 20151013
  12. VITAMIN B6 [Concomitant]
     Active Substance: PYRIDOXINE HYDROCHLORIDE
     Indication: Product used for unknown indication
     Dosage: UNK, QD
     Route: 048
     Dates: start: 20210801
  13. CENTRUM SILVER [ASCORBIC ACID;CALCIUM;MINERALS NOS;RETINOL;TOCOPHERYL [Concomitant]
     Indication: Product used for unknown indication
     Dosage: UNK UNK, QD
     Route: 048
     Dates: end: 20210810
  14. D3 50 [Concomitant]
     Indication: Product used for unknown indication
     Dosage: UNK UNK, QD
     Route: 048
     Dates: end: 20210810
  15. ERGOCALCIFEROL [Concomitant]
     Active Substance: ERGOCALCIFEROL
     Indication: Product used for unknown indication
     Dosage: UNK UNK, WEEKLY
     Dates: start: 20121026, end: 20210810
  16. FISH OIL [Concomitant]
     Active Substance: FISH OIL
     Indication: Product used for unknown indication
     Dosage: UNK, QD
     Route: 048
     Dates: end: 20210810
  17. PREVACID [Concomitant]
     Active Substance: LANSOPRAZOLE
     Indication: Product used for unknown indication
     Dosage: 15 MILLIGRAM, QD
     Route: 048
     Dates: end: 20210810
  18. VITAMIN B12 [Concomitant]
     Active Substance: CYANOCOBALAMIN
     Indication: Product used for unknown indication
     Dosage: 1000 MICROGRAM, QD
     Route: 048
     Dates: end: 20210810
  19. VITAMIN C [Concomitant]
     Active Substance: ASCORBIC ACID
     Indication: Product used for unknown indication
     Dosage: UNK UNK, QD
     Route: 048
     Dates: end: 20210810
  20. VITAMIN D3 [Concomitant]
     Active Substance: CHOLECALCIFEROL
     Indication: Product used for unknown indication
     Dosage: UNK UNK, QD
     Route: 048
     Dates: end: 20211014

REACTIONS (10)
  - Faeces discoloured [Unknown]
  - Eructation [Unknown]
  - Flatulence [Unknown]
  - Disease progression [Unknown]
  - Nausea [Unknown]
  - Diarrhoea [Unknown]
  - Drug ineffective [Unknown]
  - Product dose omission issue [Unknown]
  - Inappropriate schedule of product administration [Unknown]
  - Underdose [Unknown]

NARRATIVE: CASE EVENT DATE: 20220101
